FAERS Safety Report 21944210 (Version 1)
Quarter: 2023Q1

REPORT INFORMATION
  Report Type: Spontaneous
  Country: RU (occurrence: RU)
  Receive Date: 20230202
  Receipt Date: 20230202
  Transmission Date: 20230418
  Serious: Yes (Hospitalization)
  Sender: FDA-Public Use
  Company Number: RU-drreddys-LIT/RUS/23/0160550

PATIENT
  Age: 14 Year
  Sex: Female

DRUGS (9)
  1. CETIRIZINE [Suspect]
     Active Substance: CETIRIZINE HYDROCHLORIDE
     Indication: Dermatitis atopic
     Dosage: IN COURSES OF 7-14 DAYS
  2. PIMECROLIMUS [Suspect]
     Active Substance: PIMECROLIMUS
     Indication: Erythema
     Dosage: FOR 14 DAYS
  3. Salmeterol /fluticasone propionate [Concomitant]
     Indication: Sinobronchitis
     Dosage: AT A LOW DOSE WAS RECOMMENDED
  4. MONTELUKAST [Concomitant]
     Active Substance: MONTELUKAST SODIUM
     Indication: Sinobronchitis
     Dosage: AT A LOW DOSE WAS RECOMMENDED
  5. PREDNISOLONE [Concomitant]
     Active Substance: PREDNISOLONE
     Indication: Asthma
  6. BUDESONIDE\FORMOTEROL [Concomitant]
     Active Substance: BUDESONIDE\FORMOTEROL
     Indication: Bronchopulmonary aspergillosis allergic
     Dosage: 160/4.5 UG
  7. BUDESONIDE\FORMOTEROL [Concomitant]
     Active Substance: BUDESONIDE\FORMOTEROL
     Dosage: 160/4.5 UG
  8. TIOTROPIUM BROMIDE [Concomitant]
     Active Substance: TIOTROPIUM BROMIDE
     Indication: Bronchopulmonary aspergillosis allergic
     Dosage: TWO DOSES OF TIOTROPIUM BROMIDE 2.5 UG IN THE MORNING
  9. TIOTROPIUM BROMIDE [Concomitant]
     Active Substance: TIOTROPIUM BROMIDE
     Dosage: 2.5 UG PER DOSE OF TWO PUFFS ONE TIME A DAY DAILY

REACTIONS (1)
  - Dermatitis atopic [Recovering/Resolving]
